FAERS Safety Report 5880166-7 (Version None)
Quarter: 2008Q3

REPORT INFORMATION
  Report Type: 
  Country: None (occurrence: None)
  Receive Date: 20080912
  Receipt Date: 20080902
  Transmission Date: 20090109
  Serious: Yes (Other)
  Sender: FDA-Public Use
  Company Number: SG-PFIZER INC-2008073953

PATIENT
  Age: 38 Year
  Sex: Female

DRUGS (1)
  1. FLUCONAZOLE [Suspect]

REACTIONS (1)
  - EYE HAEMORRHAGE [None]
